FAERS Safety Report 4494511-0 (Version None)
Quarter: 2004Q4

REPORT INFORMATION
  Report Type: 
  Country: None (occurrence: None)
  Receive Date: 20041103
  Receipt Date: 20041021
  Transmission Date: 20050328
  Serious: Yes (Hospitalization)
  Sender: FDA-Public Use
  Company Number: 2004082042

PATIENT
  Age: 60 Year
  Sex: Female

DRUGS (2)
  1. ZITHROMAX [Suspect]
     Indication: STAPHYLOCOCCAL INFECTION
     Dosage: 500 MG (500 MG, 1 IN 1 D), ORAL
     Route: 048
  2. ZITHROMAX [Suspect]
     Indication: TONSILLITIS
     Dosage: 500 MG (500 MG, 1 IN 1 D), ORAL
     Route: 048

REACTIONS (4)
  - BACTERAEMIA [None]
  - DRUG INEFFECTIVE [None]
  - ENDOCARDITIS STAPHYLOCOCCAL [None]
  - PATHOGEN RESISTANCE [None]
